FAERS Safety Report 11234034 (Version 1)
Quarter: 2015Q3

REPORT INFORMATION
  Report Type: Spontaneous
  Country: GB (occurrence: GB)
  Receive Date: 20150702
  Receipt Date: 20150702
  Transmission Date: 20151125
  Serious: Yes (Hospitalization, Other)
  Sender: FDA-Public Use
  Company Number: GB-TEVA-574113ACC

PATIENT
  Age: 78 Year
  Sex: Male
  Weight: 68 kg

DRUGS (14)
  1. CYPROTERONE ACETATE [Concomitant]
     Active Substance: CYPROTERONE ACETATE
     Dosage: 6 DOSAGE FORMS DAILY;
     Dates: start: 20141105
  2. TEMAZEPAM. [Concomitant]
     Active Substance: TEMAZEPAM
     Dosage: 1 DOSAGE FORMS DAILY; AT NIGHT.
     Dates: start: 20150219
  3. FLUCLOXACILLIN [Concomitant]
     Active Substance: FLUCLOXACILLIN
     Dosage: 4 DOSAGE FORMS DAILY;
     Dates: start: 20150407, end: 20150414
  4. TRIMETHOPRIM. [Suspect]
     Active Substance: TRIMETHOPRIM
     Dates: start: 20150519
  5. ALENDRONIC ACID [Concomitant]
     Active Substance: ALENDRONIC ACID
     Dosage: .1429 DOSAGE FORMS DAILY; TAKE SAME DAY EACH WEEK.
     Dates: start: 20150219
  6. CLINITAS [Concomitant]
     Dosage: APPLY TO THE AFFECTED EYE(S) THREE TO FOUR TIMES.
     Route: 050
     Dates: start: 20130326
  7. LEVOTHYROXINE. [Concomitant]
     Active Substance: LEVOTHYROXINE
     Dosage: 1 DOSAGE FORMS DAILY; BEFORE BREAKFAST.
     Dates: start: 20150210
  8. HYDROCORTISONE. [Concomitant]
     Active Substance: HYDROCORTISONE
     Dosage: 2 DOSAGE FORMS DAILY; 1 TABLET ON WAKING AND 1 TABLET AT 4PM.
     Dates: start: 20141105
  9. IBUPROFEN. [Concomitant]
     Active Substance: IBUPROFEN
     Dosage: 3 DOSAGE FORMS DAILY; WITH MEALS.
     Dates: start: 20141105
  10. LANSOPRAZOLE. [Concomitant]
     Active Substance: LANSOPRAZOLE
     Dosage: 2 DOSAGE FORMS DAILY;
     Dates: start: 20140319
  11. ORAMORPH [Concomitant]
     Active Substance: MORPHINE SULFATE
     Indication: PAIN
     Dosage: 60 MILLIGRAM DAILY;
     Dates: start: 20150413, end: 20150420
  12. ADCAL [Concomitant]
     Dosage: 2 DOSAGE FORMS DAILY;
     Dates: start: 20150219
  13. AMLODIPINE [Concomitant]
     Active Substance: AMLODIPINE BESYLATE
     Dosage: 1 DOSAGE FORMS DAILY;
     Dates: start: 20150312
  14. PENTASA [Concomitant]
     Active Substance: MESALAMINE
     Dosage: 1 DOSAGE FORMS DAILY; INSERT ONE AT NIGHT.
     Dates: start: 20150401, end: 20150429

REACTIONS (2)
  - Jaundice [Recovering/Resolving]
  - Liver function test abnormal [Recovering/Resolving]

NARRATIVE: CASE EVENT DATE: 20150509
